FAERS Safety Report 8298643-0 (Version None)
Quarter: 2012Q2

REPORT INFORMATION
  Report Type: 
  Country: None (occurrence: None)
  Receive Date: 20120419
  Receipt Date: 20120405
  Transmission Date: 20120825
  Serious: Yes (Death, Hospitalization)
  Sender: FDA-Public Use
  Company Number: FR-JNJFOC-20120406217

PATIENT
  Age: 62 Year
  Sex: Male

DRUGS (16)
  1. CRESTOR [Concomitant]
  2. ATARAX [Concomitant]
     Route: 048
     Dates: start: 20091122
  3. ACETAMINOPHEN [Suspect]
     Route: 048
  4. XANAX [Suspect]
     Indication: ANXIETY
     Route: 048
     Dates: end: 20091122
  5. ACETAMINOPHEN [Suspect]
     Indication: TOXICITY TO VARIOUS AGENTS
     Route: 048
     Dates: start: 20091122, end: 20091122
  6. PREDNISONE TAB [Concomitant]
     Dosage: 1/2 20 MG PILL PER DAY
  7. PROPRANOLOL [Concomitant]
  8. PLAVIX [Concomitant]
  9. NEXIUM [Concomitant]
  10. ATACAND [Concomitant]
  11. FLUTICASONE PROPIONATE/SALMETEROL [Concomitant]
  12. ACTONEL [Concomitant]
  13. ARAVA [Concomitant]
  14. PNEUMO 23 [Concomitant]
  15. IBUPROFEN [Suspect]
     Indication: PRODUCT USED FOR UNKNOWN INDICATION
     Route: 048
     Dates: start: 20091122, end: 20091122
  16. ACETAMINOPHEN W/ PROPOXYPHENE HCL [Suspect]
     Indication: PRODUCT USED FOR UNKNOWN INDICATION
     Route: 048
     Dates: end: 20091122

REACTIONS (7)
  - OCULAR ICTERUS [None]
  - RESPIRATORY FAILURE [None]
  - SHOCK [None]
  - MULTI-ORGAN FAILURE [None]
  - GENERAL PHYSICAL HEALTH DETERIORATION [None]
  - HEPATITIS FULMINANT [None]
  - TOXICITY TO VARIOUS AGENTS [None]
